FAERS Safety Report 19059441 (Version 3)
Quarter: 2023Q2

REPORT INFORMATION
  Report Type: Other
  Country: JP (occurrence: JP)
  Receive Date: 20210326
  Receipt Date: 20230517
  Transmission Date: 20230722
  Serious: Yes (Other)
  Sender: FDA-Public Use
  Company Number: JP-CHUGAI-A2021011252ROCHE

PATIENT
  Age: 9 Year
  Sex: Female

DRUGS (3)
  1. CELLCEPT [Suspect]
     Active Substance: MYCOPHENOLATE MOFETIL
     Indication: Autoimmune lymphoproliferative syndrome
     Dosage: DOSAGE IS UNCERTAIN.
     Route: 048
  2. ADRENAL [Concomitant]
     Active Substance: EPINEPHRINE
  3. PREDNISOLONE [Concomitant]
     Active Substance: PREDNISOLONE

REACTIONS (3)
  - Agranulocytosis [Unknown]
  - Febrile neutropenia [Unknown]
  - Off label use [Unknown]
